FAERS Safety Report 9988210 (Version 3)
Quarter: 2014Q2

REPORT INFORMATION
  Report Type: Spontaneous
  Country: JP (occurrence: JP)
  Receive Date: 20140309
  Receipt Date: 20140411
  Transmission Date: 20141212
  Serious: Yes (Hospitalization)
  Sender: FDA-Public Use
  Company Number: PHHY2014JP028515

PATIENT
  Age: 85 Year
  Sex: Female

DRUGS (3)
  1. DIOVAN [Suspect]
     Indication: HYPERTENSION
     Dosage: UNK
     Route: 048
     Dates: end: 20140313
  2. AMLODIPINE [Concomitant]
     Indication: HYPERTENSION
     Dosage: UNK UKN, UNK
     Route: 048
     Dates: end: 20140313
  3. KLARICID [Concomitant]
     Indication: RESPIRATORY DISORDER
     Dosage: UNK UKN, UNK
     Route: 065
     Dates: end: 20140313

REACTIONS (1)
  - Interstitial lung disease [Recovered/Resolved]
